FAERS Safety Report 10811774 (Version 1)
Quarter: 2015Q1

REPORT INFORMATION
  Report Type: Spontaneous
  Country: US (occurrence: None)
  Receive Date: 20150212
  Receipt Date: 20150212
  Transmission Date: 20150721
  Serious: Yes (Other)
  Sender: FDA-Public Use
  Company Number: None

PATIENT
  Age: 41 Year
  Sex: Female
  Weight: 83.92 kg

DRUGS (1)
  1. CHLORDIAZEPOXIDE CLIDINIUM [Suspect]
     Active Substance: CHLORDIAZEPOXIDE HYDROCHLORIDE\CLIDINIUM BROMIDE
     Indication: SYNCOPE
     Dosage: 1 PILL FOUR TIMES DAILY TAKEN BY MOUTH
     Route: 048

REACTIONS (8)
  - Fluid intake reduced [None]
  - Anorexia nervosa [None]
  - Dehydration [None]
  - Drug ineffective [None]
  - Chromaturia [None]
  - Anxiety [None]
  - Syncope [None]
  - Anhedonia [None]

NARRATIVE: CASE EVENT DATE: 20141203
